FAERS Safety Report 11679590 (Version 2)
Quarter: 2015Q4

REPORT INFORMATION
  Report Type: Spontaneous
  Country: US (occurrence: US)
  Receive Date: 20151027
  Receipt Date: 20151104
  Transmission Date: 20160304
  Serious: No
  Sender: FDA-Public Use
  Company Number: US-ELI_LILLY_AND_COMPANY-US201009001305

PATIENT
  Age: 82 Year
  Sex: Female

DRUGS (19)
  1. FORTEO [Suspect]
     Active Substance: TERIPARATIDE
     Dosage: 20 UG, DAILY (1/D)
     Route: 058
     Dates: start: 20100419, end: 20101119
  2. PLAVIX [Concomitant]
     Active Substance: CLOPIDOGREL BISULFATE
     Dosage: 75 MG, DAILY (1/D)
  3. CALCIUM [Concomitant]
     Active Substance: CALCIUM
     Indication: SUPPLEMENTATION THERAPY
     Dosage: UNK, UNKNOWN
     Route: 065
  4. GLUCOSAMINE [Concomitant]
     Active Substance: GLUCOSAMINE
  5. ALBUTEROL. [Concomitant]
     Active Substance: ALBUTEROL
  6. PRILOSEC [Concomitant]
     Active Substance: OMEPRAZOLE MAGNESIUM
  7. MULTIVITAMIN [Concomitant]
     Active Substance: VITAMINS
  8. CHONDROITIN [Concomitant]
     Active Substance: CHONDROITIN
  9. FOSAMAX [Concomitant]
     Active Substance: ALENDRONATE SODIUM
     Dosage: UNK, UNKNOWN
     Route: 065
  10. PRAVASTATIN [Concomitant]
     Active Substance: PRAVASTATIN\PRAVASTATIN SODIUM
  11. IMDUR [Concomitant]
     Active Substance: ISOSORBIDE MONONITRATE
     Dosage: 30 MG, DAILY (1/D)
  12. XOPENEX [Concomitant]
     Active Substance: LEVALBUTEROL HYDROCHLORIDE
  13. XANAX [Concomitant]
     Active Substance: ALPRAZOLAM
     Dosage: 0.5 MG, AS NEEDED
  14. COQ10 [Concomitant]
     Active Substance: UBIDECARENONE
  15. FORTEO [Suspect]
     Active Substance: TERIPARATIDE
     Indication: OSTEOPOROSIS
     Dosage: 20 UG, DAILY (1/D)
     Route: 058
     Dates: start: 200909
  16. TOPROL XL [Concomitant]
     Active Substance: METOPROLOL SUCCINATE
     Dosage: 25 MG, DAILY (1/D)
  17. ASA [Concomitant]
     Active Substance: ASPIRIN
     Dosage: 81 MG, DAILY (1/D)
  18. SYMBICORT [Concomitant]
     Active Substance: BUDESONIDE\FORMOTEROL FUMARATE DIHYDRATE
  19. PERCOCET [Concomitant]
     Active Substance: ACETAMINOPHEN\OXYCODONE HYDROCHLORIDE
     Dosage: UNK, AS NEEDED

REACTIONS (12)
  - Arthralgia [Not Recovered/Not Resolved]
  - Injection site bruising [Unknown]
  - Arthritis [Unknown]
  - Pain in extremity [Unknown]
  - Nausea [Recovered/Resolved]
  - Red blood cell sedimentation rate increased [Unknown]
  - Musculoskeletal pain [Unknown]
  - Musculoskeletal disorder [Unknown]
  - Blood calcium increased [Unknown]
  - Vitamin D decreased [Unknown]
  - Myalgia [Unknown]
  - Hypercalcaemia [Unknown]

NARRATIVE: CASE EVENT DATE: 201007
